FAERS Safety Report 6500464-3 (Version None)
Quarter: 2009Q4

REPORT INFORMATION
  Report Type: 
  Country: None (occurrence: None)
  Receive Date: 20091127
  Receipt Date: 20090203
  Transmission Date: 20100525
  Serious: Yes (Other)
  Sender: FDA-Public Use
  Company Number: WAES 0610USA12817

PATIENT
  Age: 61 Year
  Sex: Female
  Weight: 49.8957 kg

DRUGS (5)
  1. FOSAMAX [Suspect]
     Indication: OSTEOPOROSIS
     Dosage: 70 MG/WKY/PO
     Route: 048
     Dates: start: 20000101
  2. BONIVA [Suspect]
     Dosage: 150 MG/MTH/PO
     Route: 048
     Dates: start: 20050101, end: 20080101
  3. ADVIL [Concomitant]
  4. ZETIA [Concomitant]
  5. CALCIUM [Concomitant]

REACTIONS (2)
  - JAW FRACTURE [None]
  - OSTEONECROSIS [None]
